FAERS Safety Report 19602164 (Version 1)
Quarter: 2021Q3

REPORT INFORMATION
  Report Type: Report from Study
  Country: US (occurrence: US)
  Receive Date: 20210722
  Receipt Date: 20210722
  Transmission Date: 20211014
  Serious: Yes (Hospitalization, Other)
  Sender: FDA-Public Use
  Company Number: US-SNT-000167

PATIENT
  Age: 19 Year
  Sex: Female
  Weight: 67 kg

DRUGS (1)
  1. BUPROPION. [Suspect]
     Active Substance: BUPROPION
     Indication: PRODUCT USED FOR UNKNOWN INDICATION
     Dosage: 53 TABLETS
     Route: 048

REACTIONS (15)
  - Overdose [Unknown]
  - Sinus tachycardia [Unknown]
  - Hyperreflexia [Recovered/Resolved]
  - Disorientation [Unknown]
  - Nervous system disorder [Unknown]
  - Serotonin syndrome [Recovered/Resolved]
  - Supraventricular tachycardia [Unknown]
  - Generalised tonic-clonic seizure [Unknown]
  - Clonus [Recovered/Resolved]
  - Suicide attempt [Unknown]
  - Hyperthermia [Recovered/Resolved]
  - Agitation [Unknown]
  - Mental status changes [Unknown]
  - Hallucination, visual [Unknown]
  - Endotracheal intubation [Unknown]
